FAERS Safety Report 16122589 (Version 1)
Quarter: 2019Q1

REPORT INFORMATION
  Report Type: Spontaneous
  Country: US (occurrence: US)
  Receive Date: 20190222
  Receipt Date: 20190222
  Transmission Date: 20190418
  Serious: Yes (Other)
  Sender: FDA-Public Use
  Company Number: None

PATIENT
  Age: 77 Year
  Sex: Male
  Weight: 86.18 kg

DRUGS (9)
  1. ELEQUIS [Concomitant]
  2. SYNTHROID [Concomitant]
     Active Substance: LEVOTHYROXINE SODIUM
  3. ZOCOR [Concomitant]
     Active Substance: SIMVASTATIN
  4. SOLTALOL [Concomitant]
  5. LOSARTAN TABS 50MG [Suspect]
     Active Substance: LOSARTAN
     Indication: HYPERTENSION
     Dosage: ?          QUANTITY:50 MG 1/2 PILL;?
     Route: 048
     Dates: start: 20180725, end: 20190104
  6. PRITIQ [Concomitant]
  7. ZYLOPRIM [Concomitant]
     Active Substance: ALLOPURINOL
  8. AMBIEN [Concomitant]
     Active Substance: ZOLPIDEM TARTRATE
  9. BOSTON SCIENTIFIC PACEMAKER [Concomitant]

REACTIONS (1)
  - Skin cancer [None]

NARRATIVE: CASE EVENT DATE: 20181201
